FAERS Safety Report 4691136-9 (Version None)
Quarter: 2005Q2

REPORT INFORMATION
  Report Type: 
  Country: None (occurrence: None)
  Receive Date: 20050610
  Receipt Date: 20050531
  Transmission Date: 20051028
  Serious: Yes (Hospitalization)
  Sender: FDA-Public Use
  Company Number: MK200506-0026-1

PATIENT
  Age: 27 Year
  Sex: Male

DRUGS (2)
  1. METHADOSE [Suspect]
     Indication: DRUG DEPENDENCE
     Dosage: 1000 MG, Q D, PO
     Route: 048
  2. HEROIN [Suspect]
     Indication: DRUG ABUSER

REACTIONS (5)
  - ANGINA PECTORIS [None]
  - ASTHENIA [None]
  - CARDIAC ANEURYSM [None]
  - HALLUCINATION [None]
  - MYOCARDIAL INFARCTION [None]
